FAERS Safety Report 9565087 (Version 2)
Quarter: 2013Q3

REPORT INFORMATION
  Report Type: Report from Study
  Country: US (occurrence: US)
  Receive Date: 20130930
  Receipt Date: 20130930
  Transmission Date: 20140515
  Serious: Yes (Other)
  Sender: FDA-Public Use
  Company Number: US-ABBVIE-13P-163-1150788-00

PATIENT
  Age: 57 Year
  Sex: Female

DRUGS (5)
  1. HUMIRA [Suspect]
     Indication: PSORIASIS
     Dates: start: 201308
  2. LEVOTHYROXINE [Concomitant]
     Indication: THYROID FUNCTION TEST ABNORMAL
  3. PROPRANOLOL [Concomitant]
     Indication: BLOOD PRESSURE
  4. SPIRONOLACTONE [Concomitant]
     Indication: OEDEMA PERIPHERAL
  5. SPIRONOLACTONE [Concomitant]
     Indication: JOINT SWELLING

REACTIONS (2)
  - Pulmonary oedema [Not Recovered/Not Resolved]
  - Road traffic accident [Not Recovered/Not Resolved]
